FAERS Safety Report 23195959 (Version 2)
Quarter: 2024Q2

REPORT INFORMATION
  Report Type: Spontaneous
  Country: AT (occurrence: AT)
  Receive Date: 20231117
  Receipt Date: 20240414
  Transmission Date: 20240716
  Serious: Yes (Other)
  Sender: FDA-Public Use
  Company Number: AT-BAXTER-2023BAX032994

PATIENT
  Sex: Male

DRUGS (26)
  1. LENALIDOMIDE [Suspect]
     Active Substance: LENALIDOMIDE
     Indication: Chronic lymphocytic leukaemia
     Dosage: DOSAGE TEXT: UNK,THERAPY START AND END DATE:ASKU
     Route: 065
  2. BENDAMUSTINE HYDROCHLORIDE [Suspect]
     Active Substance: BENDAMUSTINE HYDROCHLORIDE
     Indication: Chronic lymphocytic leukaemia
     Dosage: DOSAGE TEXT: 2 CYCLES, (START DATE: JUL-2017),THERAPY START AND END DATE:ASKU
     Route: 065
     Dates: start: 201707
  3. IMBRUVICA [Suspect]
     Active Substance: IBRUTINIB
     Indication: Chronic lymphocytic leukaemia
     Dosage: UNK
     Route: 048
     Dates: start: 20171012
  4. DOXORUBICIN [Suspect]
     Active Substance: DOXORUBICIN
     Indication: Chronic lymphocytic leukaemia
     Dosage: DOSAGE TEXT: UNK, (START DATE: OCT-2022)
     Route: 065
  5. DOXORUBICIN [Suspect]
     Active Substance: DOXORUBICIN
     Indication: Chronic lymphocytic leukaemia
     Route: 065
  6. ZANUBRUTINIB [Suspect]
     Active Substance: ZANUBRUTINIB
     Indication: Chronic lymphocytic leukaemia
     Dosage: DOSAGE TEXT: UNK, (START DATE: FEB-2022)
     Route: 065
  7. ZANUBRUTINIB [Suspect]
     Active Substance: ZANUBRUTINIB
     Indication: Chronic lymphocytic leukaemia
     Dosage: UNK
     Route: 065
     Dates: start: 202202
  8. CYCLOPHOSPHAMIDE [Suspect]
     Active Substance: CYCLOPHOSPHAMIDE
     Indication: Chronic lymphocytic leukaemia
     Dosage: DOSAGE TEXT: UNK, FIRST LINE THERAPY( START DATE: 2013)
     Route: 065
  9. CYCLOPHOSPHAMIDE [Suspect]
     Active Substance: CYCLOPHOSPHAMIDE
     Indication: Chronic lymphocytic leukaemia
     Dosage: DOSAGE TEXT: UNK, (STAT DATE: OCT-2022)
     Route: 065
  10. CYCLOPHOSPHAMIDE [Suspect]
     Active Substance: CYCLOPHOSPHAMIDE
     Indication: Chronic lymphocytic leukaemia
     Dosage: UNK
     Route: 065
     Dates: start: 202210
  11. CYCLOPHOSPHAMIDE [Suspect]
     Active Substance: CYCLOPHOSPHAMIDE
     Indication: Chronic lymphocytic leukaemia
     Dosage: UNK
     Route: 065
     Dates: start: 2013
  12. VENETOCLAX [Suspect]
     Active Substance: VENETOCLAX
     Indication: Chronic lymphocytic leukaemia
     Dosage: DOSAGE TEXT: UNK, (START DATE: 2017),THERAPY START AND END DATE: ASKU
     Route: 065
     Dates: start: 2017
  13. VENETOCLAX [Suspect]
     Active Substance: VENETOCLAX
     Indication: Chronic lymphocytic leukaemia
     Route: 065
  14. FLUDARABINE [Suspect]
     Active Substance: FLUDARABINE PHOSPHATE
     Indication: Chronic lymphocytic leukaemia
     Dosage: UNK
     Route: 065
     Dates: start: 2013
  15. FLUDARABINE [Suspect]
     Active Substance: FLUDARABINE PHOSPHATE
     Indication: Chronic lymphocytic leukaemia
     Dosage: DOSAGE TEXT: UNK, FIRST LINE THERAPY (START DATE: 2013),THERAPY START AND END DATE:ASKU
     Route: 065
  16. PREDNISOLONE [Suspect]
     Active Substance: PREDNISOLONE
     Indication: Richter^s syndrome
     Dosage: DOSAGE TEXT: UNK, (START DATE: OCT-2022),THERAPY START AND END DATE:ASKU
     Route: 065
     Dates: start: 202210
  17. PREDNISOLONE [Suspect]
     Active Substance: PREDNISOLONE
     Indication: Richter^s syndrome
     Route: 065
  18. RITUXIMAB [Suspect]
     Active Substance: RITUXIMAB
     Indication: Richter^s syndrome
     Dosage: DOSAGE TEXT: UNK,  FIRST LINE THERAPY (START DATE: 2013)
     Route: 065
     Dates: start: 202210
  19. RITUXIMAB [Suspect]
     Active Substance: RITUXIMAB
     Indication: Richter^s syndrome
     Dosage: DOSAGE TEXT: UNK, (OCT-2022),THERAPY START AND END DATE:ASKU
     Route: 065
     Dates: start: 2013
  20. RITUXIMAB [Suspect]
     Active Substance: RITUXIMAB
     Indication: Richter^s syndrome
     Route: 065
  21. TISLELIZUMAB [Suspect]
     Active Substance: TISLELIZUMAB
     Indication: Chronic lymphocytic leukaemia
     Dosage: DOSAGE TEXT: UNK, (START DATE: FEB-2022),THERAPY START AND END DATE:ASKU
     Route: 065
     Dates: start: 202202
  22. IBRUTINIB [Suspect]
     Active Substance: IBRUTINIB
     Indication: Chronic lymphocytic leukaemia
     Dosage: DOSAGE TEXT: UNK,THERAPY END DATE:ASKU
     Route: 065
     Dates: start: 20171012
  23. VINCRISTINE [Suspect]
     Active Substance: VINCRISTINE
     Indication: Chronic lymphocytic leukaemia
     Route: 065
  24. VINCRISTINE [Suspect]
     Active Substance: VINCRISTINE
     Indication: Chronic lymphocytic leukaemia
     Dosage: DOSAGE TEXT: UNK, (OCT-2022),THERAPY START AND END DATE:ASKU
     Route: 065
  25. VINCRISTINE [Suspect]
     Active Substance: VINCRISTINE
     Indication: Chronic lymphocytic leukaemia
     Dosage: UNK
     Route: 065
     Dates: start: 202210
  26. BRUKINSA [Suspect]
     Active Substance: ZANUBRUTINIB
     Indication: Chronic lymphocytic leukaemia
     Dosage: UNK
     Route: 065
     Dates: start: 202202

REACTIONS (5)
  - Lymphadenopathy [Unknown]
  - Thrombocytopenia [Unknown]
  - Disease progression [Unknown]
  - Anaemia [Unknown]
  - Off label use [Unknown]
